FAERS Safety Report 5991906-0 (Version None)
Quarter: 2008Q4

REPORT INFORMATION
  Report Type: 
  Country: None (occurrence: None)
  Receive Date: 20081202
  Receipt Date: 20080211
  Transmission Date: 20090506
  Serious: Yes (Other)
  Sender: FDA-Public Use
  Company Number: WAES 0209USA01833

PATIENT
  Age: 79 Year
  Sex: Female

DRUGS (6)
  1. FOSAMAX [Suspect]
     Indication: OSTEOPOROSIS
     Dosage: 70 MG/WKY/PO
     Route: 048
     Dates: start: 19951001, end: 20080203
  2. NEURONTIN [Suspect]
     Dates: start: 20040501
  3. ALTACE [Concomitant]
  4. LIPITOR [Concomitant]
  5. SYNTHROID [Concomitant]
  6. ATENOLOL [Concomitant]

REACTIONS (9)
  - ANKLE FRACTURE [None]
  - ARTHRALGIA [None]
  - BONE PAIN [None]
  - DYSPEPSIA [None]
  - HAND FRACTURE [None]
  - HOT FLUSH [None]
  - HYPERHIDROSIS [None]
  - SCIATICA [None]
  - SPINAL COMPRESSION FRACTURE [None]
